FAERS Safety Report 10693068 (Version 3)
Quarter: 2015Q1

REPORT INFORMATION
  Report Type: Spontaneous
  Country: JP (occurrence: JP)
  Receive Date: 20150106
  Receipt Date: 20150204
  Transmission Date: 20150720
  Serious: No
  Sender: FDA-Public Use
  Company Number: JP-PFIZER INC-2015002076

PATIENT
  Sex: Male
  Weight: 110 kg

DRUGS (1)
  1. LYRICA [Suspect]
     Active Substance: PREGABALIN
     Dosage: 1200 MG, DAILY (8 CAPSULES DAILY)
     Route: 048

REACTIONS (1)
  - Overdose [Unknown]
